FAERS Safety Report 4800796-0 (Version None)
Quarter: 2005Q4

REPORT INFORMATION
  Report Type: 
  Country: None (occurrence: None)
  Receive Date: 20051017
  Receipt Date: 20040817
  Transmission Date: 20060501
  Serious: Yes (Hospitalization)
  Sender: FDA-Public Use
  Company Number: PHBS2004US10723

PATIENT
  Age: 69 Year
  Sex: Female

DRUGS (6)
  1. ZANAFLEX [Suspect]
     Indication: MUSCLE SPASTICITY
     Dosage: 4 MG/D
     Route: 048
     Dates: start: 20040127, end: 20040203
  2. COPAXONE [Suspect]
     Indication: MULTIPLE SCLEROSIS
     Dosage: 20 MG/D
     Route: 058
     Dates: start: 20020128, end: 20040203
  3. BACLOFEN [Suspect]
     Indication: MULTIPLE SCLEROSIS
     Dosage: 14 TO 20, 20 MG TABLETS
     Route: 048
  4. DESIPRAMINE HCL [Concomitant]
     Indication: HERPES ZOSTER
  5. ACYCLOVIR [Concomitant]
     Indication: HERPES ZOSTER
  6. HYDROCODONE [Concomitant]
     Indication: HERPES ZOSTER

REACTIONS (5)
  - CONFUSIONAL STATE [None]
  - DELIRIUM [None]
  - DRUG INTERACTION [None]
  - MENTAL STATUS CHANGES [None]
  - URINARY TRACT INFECTION [None]
